FAERS Safety Report 24285348 (Version 1)
Quarter: 2024Q3

REPORT INFORMATION
  Report Type: Spontaneous
  Country: US (occurrence: US)
  Receive Date: 20240905
  Receipt Date: 20240905
  Transmission Date: 20241017
  Serious: No
  Sender: BRISTOL MYERS SQUIBB
  Company Number: US-BRISTOL-MYERS SQUIBB COMPANY-2024-141085

PATIENT
  Age: 81 Year
  Sex: Male
  Weight: 67.59 kg

DRUGS (3)
  1. POMALYST [Suspect]
     Active Substance: POMALIDOMIDE
     Indication: Plasma cell myeloma
     Route: 048
  2. XPOVIO [Concomitant]
     Active Substance: SELINEXOR
     Dosage: DAILY FOR 21 DAYS
     Route: 048
  3. XPOVIO [Concomitant]
     Active Substance: SELINEXOR
     Dosage: DAILY FOR 21 DAYS
     Route: 048

REACTIONS (2)
  - Fatigue [Recovered/Resolved]
  - Nausea [Unknown]
